FAERS Safety Report 5389730-5 (Version None)
Quarter: 2007Q3

REPORT INFORMATION
  Report Type: 
  Country: None (occurrence: None)
  Receive Date: 20070713
  Receipt Date: 20070702
  Transmission Date: 20080115
  Serious: Yes (Life-Threatening, Hospitalization, Disabling)
  Sender: FDA-Public Use
  Company Number: 100#03#2007-02512

PATIENT
  Age: 80 Year
  Sex: Female

DRUGS (6)
  1. TRAMADOL HCL [Suspect]
     Indication: PAIN IN EXTREMITY
     Dosage: 100 MG
     Route: 048
     Dates: start: 20070611, end: 20070612
  2. ACETYLSALICYLIC ACID (ACETYLSALICYLIC ACID) (ACETYLSALICYLIC ACID) [Concomitant]
  3. CARVEDILOL (CARVEDILOL) (CARVEDILOL) [Concomitant]
  4. FUROSEMIDE (FUROSEMIDE) (FUROSEMIDE) [Concomitant]
  5. LOSARTAN (LOSARTAN) (LOSARTAN) [Concomitant]
  6. NICORANDIL (NICORANDIL) (NICORANDIL) [Concomitant]

REACTIONS (1)
  - HAEMORRHAGIC STROKE [None]
